FAERS Safety Report 7355663-8 (Version None)
Quarter: 2011Q1

REPORT INFORMATION
  Report Type: 
  Country: None (occurrence: None)
  Receive Date: 20110316
  Receipt Date: 20110217
  Transmission Date: 20110831
  Serious: No
  Sender: FDA-Public Use
  Company Number: US-B.I. PHARMACEUTICALS,INC./RIDGEFIELD-2011-BP-05997BP

PATIENT
  Sex: Male

DRUGS (13)
  1. FLOMAX [Concomitant]
     Indication: PROSTATIC DISORDER
     Dosage: 0.4 MG
     Dates: start: 20060101
  2. FISH OIL [Concomitant]
     Indication: PROPHYLAXIS
  3. ROPINIROLE [Concomitant]
     Indication: RESTLESS LEGS SYNDROME
  4. BENICAR [Concomitant]
     Indication: HYPERTENSION
     Dosage: 40 MG
  5. MULTIVITAMIN [Concomitant]
     Indication: PROPHYLAXIS
  6. PRADAXA [Suspect]
     Indication: ATRIAL FIBRILLATION
     Dosage: 300 MG
     Route: 048
     Dates: start: 20110210
  7. TEKTURNA [Concomitant]
     Indication: HYPERTENSION
  8. METOPROLOL SUCCINATE [Concomitant]
     Indication: HYPERTENSION
     Dosage: 100 MG
  9. LYRICA [Concomitant]
     Indication: NEUROPATHY PERIPHERAL
     Dosage: 150 MG
  10. DILTIAZEM [Concomitant]
     Indication: HYPERTENSION
     Dosage: 120 MG
  11. METANX [Concomitant]
     Indication: PROPHYLAXIS
  12. PRAVASTATIN [Concomitant]
     Indication: BLOOD CHOLESTEROL INCREASED
     Dosage: 20 MG
  13. BENFOTIAMINE [Concomitant]
     Indication: NEUROPATHY PERIPHERAL

REACTIONS (4)
  - WHITE BLOOD CELL COUNT INCREASED [None]
  - BLOOD GLUCOSE INCREASED [None]
  - NEUTROPHIL PERCENTAGE INCREASED [None]
  - HEPATIC ENZYME INCREASED [None]
